FAERS Safety Report 18956989 (Version 1)
Quarter: 2021Q1

REPORT INFORMATION
  Report Type: Spontaneous
  Country: US (occurrence: US)
  Receive Date: 20210302
  Receipt Date: 20210302
  Transmission Date: 20210420
  Serious: No
  Sender: FDA-Public Use
  Company Number: US-SA-2021SA065990

PATIENT
  Sex: Female

DRUGS (4)
  1. DUPIXENT [Suspect]
     Active Substance: DUPILUMAB
     Dosage: UNK UNK, Q4W
  2. DOXYCYCLINE. [Suspect]
     Active Substance: DOXYCYCLINE
     Dosage: 50 MG, TWICE
  3. AMPHOTERICIN B/TETRACYCLINE [Concomitant]
     Active Substance: AMPHOTERICIN B\TETRACYCLINE
  4. DUPIXENT [Suspect]
     Active Substance: DUPILUMAB
     Indication: PEMPHIGOID

REACTIONS (2)
  - Weight decreased [Unknown]
  - Off label use [Unknown]
